FAERS Safety Report 26155713 (Version 1)
Quarter: 2025Q4

REPORT INFORMATION
  Report Type: Spontaneous
  Country: EU (occurrence: EU)
  Receive Date: 20251215
  Receipt Date: 20251215
  Transmission Date: 20260118
  Serious: No
  Sender: ALKEM
  Company Number: None

PATIENT
  Age: 42 Year
  Sex: Female
  Weight: 70 kg

DRUGS (3)
  1. TACROLIMUS [Suspect]
     Active Substance: TACROLIMUS
     Indication: Neurodermatitis
     Dosage: 10 MILLIGRAM, BID
     Route: 048
     Dates: start: 201403
  2. TACROLIMUS [Suspect]
     Active Substance: TACROLIMUS
     Dosage: 15 MILLIGRAM, QD
     Route: 048
     Dates: start: 201403
  3. TACROLIMUS [Suspect]
     Active Substance: TACROLIMUS
     Dosage: 10 MILLIGRAM, OD (DECREASED DOSE)
     Route: 048
     Dates: start: 201403

REACTIONS (5)
  - Immunosuppressant drug level increased [Unknown]
  - Blood creatinine increased [Unknown]
  - Headache [Unknown]
  - Nausea [Unknown]
  - Blood pressure increased [Unknown]

NARRATIVE: CASE EVENT DATE: 20140401
